FAERS Safety Report 4386756-5 (Version None)
Quarter: 2004Q2

REPORT INFORMATION
  Report Type: 
  Country: None (occurrence: None)
  Receive Date: 20040607
  Receipt Date: 20030707
  Transmission Date: 20050107
  Serious: Yes (Other)
  Sender: FDA-Public Use
  Company Number: 341966

PATIENT
  Sex: Female

DRUGS (4)
  1. ACCUTANE [Suspect]
     Indication: DRUG USE FOR UNKNOWN INDICATION
     Dosage: ORAL
     Route: 048
     Dates: start: 20030630, end: 20031218
  2. ORAL CONTRACEPTION (ORAL CONTRACEPTION NOS) [Concomitant]
  3. OMEGA 3 FISH OIL (DOCONEXENT/ICOSAPENT) [Concomitant]
  4. AMNESTEEM [Concomitant]

REACTIONS (8)
  - ADVERSE EVENT [None]
  - BACK PAIN [None]
  - CONVULSION [None]
  - DRY MOUTH [None]
  - FAECES DISCOLOURED [None]
  - KERATOCONJUNCTIVITIS SICCA [None]
  - LIP DRY [None]
  - STEATORRHOEA [None]
